FAERS Safety Report 10032135 (Version 4)
Quarter: 2014Q3

REPORT INFORMATION
  Report Type: Report from Study
  Country: JP (occurrence: JP)
  Receive Date: 20140324
  Receipt Date: 20140919
  Transmission Date: 20150326
  Serious: Yes (Death, Life-Threatening, Other)
  Sender: FDA-Public Use
  Company Number: JP-009507513-1403JPN007386

PATIENT
  Age: 77 Year
  Sex: Male

DRUGS (6)
  1. IRBETAN [Concomitant]
     Active Substance: IRBESARTAN
     Indication: HYPERTENSION
     Dosage: 100 MG, QD
     Route: 048
     Dates: start: 20121026, end: 20121221
  2. HICALIQ RF [Concomitant]
     Indication: INSULINOMA
     Dosage: 500-1500 ML/DAY, DIVIDED DOSE FREQUENCY UNKNOWN
     Dates: start: 20121108, end: 20121224
  3. DIAZOXIDE CAPSULES 25 MG ^MSD^ [Suspect]
     Active Substance: DIAZOXIDE
     Dosage: 100 MG, BID
     Route: 048
     Dates: start: 20121207, end: 20121213
  4. SUNRYTHM [Concomitant]
     Active Substance: PILSICAINIDE HYDROCHLORIDE
     Indication: ATRIAL FIBRILLATION
     Dosage: 25 MG, TID, FORMULATION: POR
     Route: 048
     Dates: start: 20121030, end: 20121221
  5. DIAZOXIDE CAPSULES 25 MG ^MSD^ [Suspect]
     Active Substance: DIAZOXIDE
     Indication: HYPOGLYCAEMIA
     Dosage: 100 MG, BID
     Route: 048
     Dates: start: 20121115, end: 20121126
  6. DIAZOXIDE CAPSULES 25 MG ^MSD^ [Suspect]
     Active Substance: DIAZOXIDE
     Dosage: 200 MG, BID
     Route: 048
     Dates: start: 20121214, end: 20121219

REACTIONS (5)
  - Respiratory failure [Fatal]
  - Oedema [Not Recovered/Not Resolved]
  - Hypoglycaemia [Not Recovered/Not Resolved]
  - Cardiac failure [Not Recovered/Not Resolved]
  - Insulinoma [Not Recovered/Not Resolved]

NARRATIVE: CASE EVENT DATE: 20121115
